FAERS Safety Report 6580540-X (Version None)
Quarter: 2010Q1

REPORT INFORMATION
  Report Type: 
  Country: None (occurrence: None)
  Receive Date: 20100212
  Receipt Date: 20100203
  Transmission Date: 20100710
  Serious: Yes (Hospitalization)
  Sender: FDA-Public Use
  Company Number: IN-ABBOTT-10P-078-0623875-00

PATIENT
  Age: 51 Year
  Sex: Female

DRUGS (1)
  1. CYCLOSPORINE [Suspect]
     Indication: APLASTIC ANAEMIA

REACTIONS (2)
  - GINGIVAL BLEEDING [None]
  - GINGIVAL HYPERTROPHY [None]
